FAERS Safety Report 25382617 (Version 1)
Quarter: 2025Q2

REPORT INFORMATION
  Report Type: Spontaneous
  Country: CN (occurrence: CN)
  Receive Date: 20250601
  Receipt Date: 20250601
  Transmission Date: 20250716
  Serious: Yes (Other)
  Sender: ABBVIE
  Company Number: CN-ABBVIE-6302663

PATIENT
  Age: 70 Year
  Sex: Male
  Weight: 64 kg

DRUGS (2)
  1. VENETOCLAX [Suspect]
     Active Substance: VENETOCLAX
     Indication: Myelodysplastic syndrome
     Dosage: 400 MILLIGRAM, DAY 1-10
     Route: 048
     Dates: start: 20250408, end: 20250417
  2. DECITABINE [Concomitant]
     Active Substance: DECITABINE
     Indication: Myelodysplastic syndrome
     Dosage: 354 MILLIGRAM, DAY 1-5
     Route: 041
     Dates: start: 20250408, end: 20250412

REACTIONS (1)
  - Myelosuppression [Recovering/Resolving]

NARRATIVE: CASE EVENT DATE: 20250427
